FAERS Safety Report 6678575-1 (Version None)
Quarter: 2010Q2

REPORT INFORMATION
  Report Type: 
  Country: None (occurrence: None)
  Receive Date: 20100409
  Receipt Date: 20100409
  Transmission Date: 20101027
  Serious: Yes (Other)
  Sender: FDA-Public Use
  Company Number: None

PATIENT
  Sex: Female
  Weight: 79.5 kg

DRUGS (10)
  1. AZOR [Suspect]
     Indication: HYPERTENSION
     Dosage: AZOR 10-40 MG ONCE DAILY ORALLY
     Route: 048
     Dates: start: 20080717, end: 20091123
  2. TRILIPIX [Suspect]
     Indication: HYPERLIPIDAEMIA
     Dosage: TRILIPIX 45 MG ONCE DAILY ORALLY
     Route: 048
     Dates: start: 20090207, end: 20091123
  3. LOVAZA [Suspect]
  4. ZETIA [Concomitant]
  5. TRIAMTERENE [Concomitant]
  6. VITAMIN B-12 [Concomitant]
  7. VITAMIN D [Concomitant]
  8. CALCIUM [Concomitant]
  9. IRON [Concomitant]
  10. CRESTOR [Concomitant]

REACTIONS (2)
  - ANAEMIA [None]
  - RENAL IMPAIRMENT [None]
